FAERS Safety Report 5111622-7 (Version None)
Quarter: 2006Q3

REPORT INFORMATION
  Report Type: 
  Country: None (occurrence: None)
  Receive Date: 20060922
  Receipt Date: 20060509
  Transmission Date: 20061208
  Serious: Yes (Other)
  Sender: FDA-Public Use
  Company Number: PHEH2006US06134

PATIENT
  Sex: Male

DRUGS (18)
  1. ZOMETA [Suspect]
     Indication: MULTIPLE MYELOMA
     Dosage: 4MG UNK
     Dates: start: 20020327, end: 20020624
  2. ZOMETA [Suspect]
     Dosage: 4 MG, UNK
     Dates: start: 20020826, end: 20021030
  3. ZOMETA [Suspect]
     Dosage: 4 MG, UNK
     Dates: start: 20021204, end: 20030529
  4. ZOMETA [Suspect]
     Dosage: 4 MG, ONCE/SINGLE
     Dates: start: 20030724, end: 20030724
  5. ZOMETA [Suspect]
     Dosage: 4 MG, ONCE/SINGLE
     Dates: start: 20031021, end: 20031021
  6. ZOMETA [Suspect]
     Dosage: 4 MG, ONCE/SINGLE
     Dates: start: 20040119, end: 20040119
  7. ZOMETA [Suspect]
     Dosage: 4 MG, ONCE/SINGLE
     Dates: start: 20040315, end: 20040315
  8. ZOMETA [Suspect]
     Dosage: 4 MG, ONCE/SINGLE
     Dates: start: 20040610, end: 20040610
  9. THALIDOMIDE [Concomitant]
     Indication: MULTIPLE MYELOMA
     Dosage: 50-200 MG , DAILY
     Dates: start: 20000710, end: 20040101
  10. NEURONTIN [Concomitant]
     Indication: NEUROPATHY PERIPHERAL
     Dosage: 300 MG, QD + PRN
     Dates: start: 20000201, end: 20000101
  11. NEURONTIN [Concomitant]
     Dosage: 300 MG, BID
     Dates: start: 20020601, end: 20020901
  12. ALLOPURINOL [Concomitant]
     Indication: GOUT
     Dosage: 300 MG, QD
     Dates: start: 20051201
  13. AREDIA [Suspect]
     Indication: MULTIPLE MYELOMA
     Dosage: 90 MG, UNK
     Dates: start: 20010713, end: 20020227
  14. AREDIA [Suspect]
     Dosage: 90 MG, ONCE/SINGLE
     Dates: start: 20050411, end: 20050411
  15. AREDIA [Suspect]
     Dosage: 90 MG, ONCE/SINGLE
     Dates: start: 20051117, end: 20051117
  16. AREDIA [Suspect]
     Dosage: 45 MG, ONCE/SINGLE
     Dates: start: 20050728, end: 20050728
  17. PROCRIT [Concomitant]
     Indication: ANAEMIA
     Dosage: VARIED DOSES
     Dates: start: 19990626, end: 20011218
  18. NEUPOGEN [Concomitant]
     Indication: WHITE BLOOD CELL COUNT DECREASED
     Dosage: 480 MEQ, UNK
     Dates: start: 20000525, end: 20011218

REACTIONS (2)
  - BONE DISORDER [None]
  - OSTEONECROSIS [None]
